FAERS Safety Report 5320564-3 (Version None)
Quarter: 2007Q1

REPORT INFORMATION
  Report Type: 
  Country: None (occurrence: None)
  Receive Date: 20070220
  Receipt Date: 20061211
  Transmission Date: 20070707
  Serious: No
  Sender: FDA-Public Use
  Company Number: WAES 0612USA01627

PATIENT
  Age: 74 Year
  Sex: Female

DRUGS (7)
  1. JANUVIA [Suspect]
     Indication: DIABETES MELLITUS NON-INSULIN-DEPENDENT
     Dosage: 100 MG/DAILY/PO
     Route: 048
     Dates: start: 20061130
  2. AVALIDE [Concomitant]
  3. BETAPACE [Concomitant]
  4. COUMADIN [Concomitant]
  5. SYNTHROID [Concomitant]
  6. ASPIRIN [Concomitant]
  7. GLIMEPIRIDE [Concomitant]

REACTIONS (4)
  - DIZZINESS [None]
  - HYPOAESTHESIA ORAL [None]
  - HYPOGLYCAEMIA [None]
  - NAUSEA [None]
